FAERS Safety Report 24372370 (Version 1)
Quarter: 2024Q3

REPORT INFORMATION
  Report Type: Spontaneous
  Country: CN (occurrence: CN)
  Receive Date: 20240927
  Receipt Date: 20240927
  Transmission Date: 20241017
  Serious: Yes (Other)
  Sender: RANBAXY
  Company Number: CN-SUN PHARMACEUTICAL INDUSTRIES LTD-2024R1-470454

PATIENT
  Age: 57 Year
  Sex: Female

DRUGS (5)
  1. CAPECITABINE [Suspect]
     Active Substance: CAPECITABINE
     Indication: Metastases to central nervous system
     Dosage: 1.5 GRAM, BID
     Route: 048
     Dates: start: 202111
  2. PACLITAXEL [Suspect]
     Active Substance: PACLITAXEL
     Indication: Metastases to central nervous system
     Dosage: UNK, 12 CYCLES
     Route: 065
     Dates: start: 202012
  3. PYROTINIB [Suspect]
     Active Substance: PYROTINIB
     Indication: Metastases to central nervous system
     Dosage: 400 MILLIGRAM, QD
     Route: 065
     Dates: start: 202111
  4. PERTUZUMAB [Suspect]
     Active Substance: PERTUZUMAB
     Indication: Metastases to central nervous system
     Dosage: UNK, 12 CYCLES
     Route: 065
     Dates: start: 202012
  5. TRASTUZUMAB [Suspect]
     Active Substance: TRASTUZUMAB
     Indication: Metastases to central nervous system
     Dosage: UNK, 12 CYCLES
     Route: 065
     Dates: start: 202012

REACTIONS (1)
  - Therapeutic response decreased [Unknown]
